FAERS Safety Report 5727959-4 (Version None)
Quarter: 2008Q2

REPORT INFORMATION
  Report Type: 
  Country: None (occurrence: None)
  Receive Date: 20080430
  Receipt Date: 20080225
  Transmission Date: 20081010
  Serious: No
  Sender: FDA-Public Use
  Company Number: 2008PV034371

PATIENT
  Age: 67 Year
  Sex: Male

DRUGS (4)
  1. SYMLIN [Suspect]
     Indication: TYPE 2 DIABETES MELLITUS
     Dosage: 120 MCG;BID;SC
     Route: 058
     Dates: start: 20080218
  2. LANTUS [Concomitant]
  3. JANUVIA [Concomitant]
  4. APIDRA [Concomitant]

REACTIONS (2)
  - BLOOD GLUCOSE DECREASED [None]
  - DRUG INEFFECTIVE [None]
